FAERS Safety Report 8620158-8 (Version None)
Quarter: 2012Q3

REPORT INFORMATION
  Report Type: 
  Country: None (occurrence: None)
  Receive Date: 20120817
  Receipt Date: 20120817
  Transmission Date: 20120928
  Serious: Yes (Hospitalization)
  Sender: FDA-Public Use
  Company Number: None

PATIENT
  Age: 65 Year
  Sex: Male
  Weight: 52.5 kg

DRUGS (1)
  1. ERTAPENEM [Suspect]
     Indication: ESCHERICHIA URINARY TRACT INFECTION
     Dosage: 1 GM EVERY DAY IV
     Route: 042
     Dates: start: 20120611, end: 20120621

REACTIONS (1)
  - GRAND MAL CONVULSION [None]
